FAERS Safety Report 13731606 (Version 2)
Quarter: 2017Q4

REPORT INFORMATION
  Report Type: Spontaneous
  Country: CH (occurrence: CH)
  Receive Date: 20170707
  Receipt Date: 20171006
  Transmission Date: 20180320
  Serious: No
  Sender: FDA-Public Use
  Company Number: CH-AMGEN-CHESP2017101396

PATIENT

DRUGS (1)
  1. REPATHA [Suspect]
     Active Substance: EVOLOCUMAB
     Indication: BLOOD CHOLESTEROL ABNORMAL
     Dosage: UNK
     Route: 065

REACTIONS (4)
  - Muscle spasms [Recovered/Resolved]
  - Back pain [Recovered/Resolved]
  - Cough [Recovered/Resolved]
  - Nausea [Unknown]
